FAERS Safety Report 4302694-8 (Version None)
Quarter: 2004Q1

REPORT INFORMATION
  Report Type: 
  Country: None (occurrence: None)
  Receive Date: 20040224
  Receipt Date: 20040211
  Transmission Date: 20041129
  Serious: Yes (Other)
  Sender: FDA-Public Use
  Company Number: PHRM2004FR00851

PATIENT
  Age: 35 Year
  Sex: Male

DRUGS (1)
  1. NEORAL [Suspect]
     Indication: RASH PAPULAR
     Route: 048

REACTIONS (3)
  - CHOLESTASIS [None]
  - HEPATITIS [None]
  - HEPATOCELLULAR DAMAGE [None]
